FAERS Safety Report 5213026-5 (Version None)
Quarter: 2007Q1

REPORT INFORMATION
  Report Type: 
  Country: None (occurrence: None)
  Receive Date: 20070119
  Receipt Date: 20070116
  Transmission Date: 20070707
  Serious: Yes (Other)
  Sender: FDA-Public Use
  Company Number: IL-BRISTOL-MYERS SQUIBB COMPANY-13644281

PATIENT
  Age: 52 Year
  Sex: Male

DRUGS (10)
  1. CYCLOPHOSPHAMIDE [Suspect]
     Indication: B PRECURSOR TYPE ACUTE LEUKAEMIA
  2. METHOTREXATE [Suspect]
     Indication: B PRECURSOR TYPE ACUTE LEUKAEMIA
     Route: 037
  3. VINCRISTINE [Suspect]
     Indication: B PRECURSOR TYPE ACUTE LEUKAEMIA
  4. CYTARABINE [Suspect]
     Indication: B PRECURSOR TYPE ACUTE LEUKAEMIA
  5. DAUNORUBICIN HCL [Suspect]
     Indication: B PRECURSOR TYPE ACUTE LEUKAEMIA
  6. DEXAMETHASONE [Suspect]
     Indication: B PRECURSOR TYPE ACUTE LEUKAEMIA
  7. ASPARAGINASE [Suspect]
     Indication: B PRECURSOR TYPE ACUTE LEUKAEMIA
  8. MERCAPTOPURINE [Suspect]
     Indication: B PRECURSOR TYPE ACUTE LEUKAEMIA
  9. LAMIVUDINE [Concomitant]
     Indication: PROPHYLAXIS
  10. RITUXIMAB [Concomitant]
     Indication: B PRECURSOR TYPE ACUTE LEUKAEMIA

REACTIONS (1)
  - HEPATOTOXICITY [None]
